FAERS Safety Report 21124185 (Version 1)
Quarter: 2022Q3

REPORT INFORMATION
  Report Type: Spontaneous
  Country: US (occurrence: US)
  Receive Date: 20220725
  Receipt Date: 20220725
  Transmission Date: 20221027
  Serious: No
  Sender: FDA-Public Use
  Company Number: US-SANOFI-01193883

PATIENT
  Age: 59 Year
  Sex: Female

DRUGS (2)
  1. DUPIXENT [Suspect]
     Active Substance: DUPILUMAB
     Indication: Dermatitis
     Dosage: 300 MG, QOW
     Route: 058
  2. DUPIXENT [Suspect]
     Active Substance: DUPILUMAB
     Indication: Pruritus

REACTIONS (7)
  - Temporomandibular joint syndrome [Unknown]
  - Visual impairment [Unknown]
  - Eye pain [Unknown]
  - Tooth extraction [Unknown]
  - Toothache [Unknown]
  - Pain in jaw [Unknown]
  - Product use in unapproved indication [Unknown]
